FAERS Safety Report 5675097-1 (Version None)
Quarter: 2008Q1

REPORT INFORMATION
  Report Type: 
  Country: None (occurrence: None)
  Receive Date: 20080320
  Receipt Date: 20080311
  Transmission Date: 20080703
  Serious: Yes (Other)
  Sender: FDA-Public Use
  Company Number: US-JNJFOC-20080303250

PATIENT
  Sex: Female
  Weight: 113.4 kg

DRUGS (15)
  1. DURAGESIC-100 [Suspect]
     Route: 062
  2. DURAGESIC-100 [Suspect]
     Route: 062
  3. DURAGESIC-100 [Suspect]
     Route: 062
  4. DURAGESIC-100 [Suspect]
     Indication: PAIN IN EXTREMITY
     Route: 062
  5. FENTANYL TRANSDERMAL SYSTEM [Suspect]
     Indication: PAIN IN EXTREMITY
     Route: 062
  6. MORPHINE [Concomitant]
     Indication: PAIN
     Route: 065
  7. INDERAL [Concomitant]
     Indication: CARDIAC DISORDER
     Route: 048
  8. SIMVASTATIN [Concomitant]
     Indication: BLOOD CHOLESTEROL INCREASED
     Route: 048
  9. VICODIN [Concomitant]
     Indication: PAIN IN EXTREMITY
     Dosage: 5/50MG TABLET UP TO 4 TIMES A DAY AS NEEDED
     Route: 048
  10. NEURONTIN [Concomitant]
     Indication: PAIN IN EXTREMITY
     Route: 048
  11. LEVOTHYROXINE SODIUM [Concomitant]
     Indication: HYPOTHYROIDISM
     Route: 048
  12. DIAZOXIDE [Concomitant]
     Indication: CARDIAC DISORDER
     Dosage: 50/25MG DAILY
     Route: 048
  13. PRILOSEC [Concomitant]
     Indication: DYSPEPSIA
     Route: 048
  14. XANAX [Concomitant]
     Indication: SLEEP DISORDER
     Route: 048
  15. TEMAZEPAM [Concomitant]
     Indication: SLEEP DISORDER
     Route: 048

REACTIONS (6)
  - APPLICATION SITE RASH [None]
  - CHILLS [None]
  - COMA [None]
  - DRUG INEFFECTIVE [None]
  - JOINT SWELLING [None]
  - TREATMENT NONCOMPLIANCE [None]
